FAERS Safety Report 7610848-8 (Version None)
Quarter: 2011Q3

REPORT INFORMATION
  Report Type: 
  Country: None (occurrence: None)
  Receive Date: 20110715
  Receipt Date: 20110711
  Transmission Date: 20111222
  Serious: Yes (Hospitalization)
  Sender: FDA-Public Use
  Company Number: FR-US-EMD SERONO, INC.-7056187

PATIENT
  Sex: Male
  Weight: 79 kg

DRUGS (10)
  1. AMITRIPTYLINE HCL [Concomitant]
     Indication: SLEEP DISORDER
     Dosage: 20 DROPS
     Route: 048
     Dates: start: 20100419
  2. ATENOLOL [Concomitant]
     Indication: TACHYCARDIA
     Route: 048
     Dates: start: 20100419
  3. CLONAZEPAM [Concomitant]
     Indication: MULTIPLE SCLEROSIS
     Dosage: 5 DROPS
     Route: 048
     Dates: start: 20100419
  4. UVEDOSE [Suspect]
     Indication: RELAPSING-REMITTING MULTIPLE SCLEROSIS
     Route: 048
     Dates: start: 20100303
  5. REBIF [Suspect]
     Indication: RELAPSING-REMITTING MULTIPLE SCLEROSIS
     Route: 058
     Dates: start: 20091015
  6. ATENOLOL [Concomitant]
     Indication: ARRHYTHMIA
     Route: 048
     Dates: start: 20070101
  7. KETOPROFEN [Concomitant]
     Indication: MIGRAINE
     Route: 048
     Dates: start: 20100302
  8. IBUPROFEN [Concomitant]
     Indication: INFLUENZA LIKE ILLNESS
     Route: 048
     Dates: start: 20090615
  9. ACETAMINOPHEN [Concomitant]
     Indication: INFLUENZA LIKE ILLNESS
     Route: 048
     Dates: start: 20090615
  10. ALFUZOSIN HCL [Concomitant]
     Indication: MULTIPLE SCLEROSIS
     Route: 048
     Dates: start: 20091015

REACTIONS (1)
  - PULMONARY HYPERTENSION [None]
